FAERS Safety Report 5339631-3 (Version None)
Quarter: 2007Q2

REPORT INFORMATION
  Report Type: 
  Country: None (occurrence: None)
  Receive Date: 20070330
  Receipt Date: 20060530
  Transmission Date: 20071010
  Serious: Yes (Other)
  Sender: FDA-Public Use
  Company Number: AEDSFSSO20062405MED03

PATIENT
  Sex: Female

DRUGS (2)
  1. DERMA-SMOOTHE/FS [Suspect]
     Indication: PSORIASIS
     Dosage: ONCE A DAY, TOPICAL
     Route: 061
  2. OLUX [Concomitant]

REACTIONS (1)
  - PSORIASIS [None]
